FAERS Safety Report 9274587 (Version 1)
Quarter: 2013Q2

REPORT INFORMATION
  Report Type: Report from Study
  Country: FR (occurrence: FR)
  Receive Date: 20130507
  Receipt Date: 20130507
  Transmission Date: 20140414
  Serious: Yes (Hospitalization)
  Sender: FDA-Public Use
  Company Number: FR-ROCHE-1221608

PATIENT
  Age: 72 Year
  Sex: Female

DRUGS (1)
  1. RITUXIMAB [Suspect]
     Indication: PEMPHIGUS
     Route: 065

REACTIONS (1)
  - Intervertebral disc compression [Unknown]
